FAERS Safety Report 6441798-0 (Version None)
Quarter: 2009Q4

REPORT INFORMATION
  Report Type: 
  Country: None (occurrence: None)
  Receive Date: 20091116
  Receipt Date: 20091110
  Transmission Date: 20100525
  Serious: Yes (Hospitalization)
  Sender: FDA-Public Use
  Company Number: JP-GENENTECH-293994

PATIENT
  Age: 8 Year
  Sex: Male

DRUGS (1)
  1. RITUXAN [Suspect]
     Indication: LIVER TRANSPLANT
     Route: 042

REACTIONS (1)
  - INTERSTITIAL LUNG DISEASE [None]
